FAERS Safety Report 12871501 (Version 4)
Quarter: 2016Q4

REPORT INFORMATION
  Report Type: Spontaneous
  Country: JP (occurrence: JP)
  Receive Date: 20161020
  Receipt Date: 20161108
  Transmission Date: 20170207
  Serious: Yes (Disabling)
  Sender: FDA-Public Use
  Company Number: JP-BEH-2016074324

PATIENT
  Age: 8 Year
  Sex: Female
  Weight: 40 kg

DRUGS (2)
  1. BAKTAR [Concomitant]
     Active Substance: SULFAMETHOXAZOLE\TRIMETHOPRIM
  2. HIZENTRA [Suspect]
     Active Substance: HUMAN IMMUNOGLOBULIN G
     Indication: IMMUNODEFICIENCY COMMON VARIABLE
     Dosage: 2 G, QW
     Route: 058
     Dates: start: 20150723

REACTIONS (3)
  - Herpes virus infection [Not Recovered/Not Resolved]
  - Ophthalmic herpes simplex [Recovered/Resolved]
  - Herpes virus infection [Recovered/Resolved]
